FAERS Safety Report 5711670-X (Version None)
Quarter: 2008Q2

REPORT INFORMATION
  Report Type: 
  Country: None (occurrence: None)
  Receive Date: 20080421
  Receipt Date: 20080409
  Transmission Date: 20081010
  Serious: Yes (Hospitalization)
  Sender: FDA-Public Use
  Company Number: FR-PFIZER INC-2006082173

PATIENT
  Sex: Female

DRUGS (13)
  1. SU-011,248 [Suspect]
     Indication: METASTATIC RENAL CELL CARCINOMA
     Route: 048
  2. SU-011,248 [Suspect]
     Route: 048
  3. CYAMEMAZINE [Concomitant]
     Route: 048
  4. LORMETAZEPAM [Concomitant]
     Route: 048
  5. TIANEPTINE [Concomitant]
     Route: 048
  6. LORAZEPAM [Concomitant]
     Route: 048
  7. ANETHOLE TRITHIONE [Concomitant]
     Route: 048
  8. MAGNE-B6 [Concomitant]
     Route: 048
  9. MEPRONIZINE [Concomitant]
     Route: 048
  10. GAVISCON [Concomitant]
     Route: 048
  11. RANITIDINE [Concomitant]
     Route: 048
  12. METRONIDAZOLE HCL [Concomitant]
     Route: 048
  13. TITANOREINE [Concomitant]
     Route: 062

REACTIONS (1)
  - ANAL ABSCESS [None]
